APPROVED DRUG PRODUCT: FOSRENOL
Active Ingredient: LANTHANUM CARBONATE
Strength: EQ 750MG BASE
Dosage Form/Route: POWDER;ORAL
Application: N204734 | Product #001
Applicant: TAKEDA PHARMACEUTICALS USA INC
Approved: Sep 24, 2014 | RLD: Yes | RS: No | Type: RX

PATENTS:
Patent 9023397 | Expires: Dec 1, 2030
Patent 8980327 | Expires: Dec 1, 2030